FAERS Safety Report 9364867 (Version 2)
Quarter: 2013Q3

REPORT INFORMATION
  Report Type: Spontaneous
  Country: US (occurrence: US)
  Receive Date: 20130624
  Receipt Date: 20130715
  Transmission Date: 20140515
  Serious: Yes (Hospitalization, Other)
  Sender: FDA-Public Use
  Company Number: US-GLAXOSMITHKLINE-A1028065A

PATIENT
  Age: 88 Year
  Sex: Female
  Weight: 74.1 kg

DRUGS (5)
  1. FAMVIR [Suspect]
     Indication: HERPES ZOSTER
     Dosage: 500MG UNKNOWN
     Route: 048
     Dates: start: 20130121, end: 20130128
  2. LYRICA [Suspect]
     Indication: HERPES ZOSTER
     Dosage: 50U UNKNOWN
     Route: 048
     Dates: start: 20130128, end: 20130131
  3. NORCO [Suspect]
     Indication: HERPES ZOSTER
     Route: 065
  4. ACYCLOVIR [Suspect]
     Indication: PRODUCT USED FOR UNKNOWN INDICATION
     Route: 065
  5. ZOLOFT [Concomitant]

REACTIONS (6)
  - Convulsion [Unknown]
  - Drug interaction [Unknown]
  - Aura [Unknown]
  - Headache [Unknown]
  - Urinary incontinence [Unknown]
  - Faecal incontinence [Unknown]
